FAERS Safety Report 6616259-6 (Version None)
Quarter: 2010Q1

REPORT INFORMATION
  Report Type: 
  Country: None (occurrence: None)
  Receive Date: 20100305
  Receipt Date: 20100301
  Transmission Date: 20100710
  Serious: Yes (Death, Other)
  Sender: FDA-Public Use
  Company Number: FR-ELI_LILLY_AND_COMPANY-FR201002000141

PATIENT
  Age: 61 Year
  Sex: Female
  Weight: 63 kg

DRUGS (5)
  1. ALIMTA [Suspect]
     Indication: NON-SMALL CELL LUNG CANCER METASTATIC
     Dosage: 500 MG/M2 (837MG/INFUSION), EVERY 3 WEEKS
     Route: 042
     Dates: start: 20090904, end: 20090101
  2. ALIMTA [Suspect]
     Dosage: 500 MG/M2, (837MG/INFUSION), EVERY 3 WEEKS
     Route: 042
     Dates: start: 20091103, end: 20091217
  3. FOLIC ACID [Concomitant]
     Indication: VITAMIN SUPPLEMENTATION
     Dosage: UNK, UNKNOWN
  4. VITAMIN B-12 [Concomitant]
     Indication: VITAMIN SUPPLEMENTATION
     Dosage: UNK, UNKNOWN
  5. CORTICOSTEROID NOS [Concomitant]
     Indication: PROPHYLAXIS
     Dosage: UNK, UNKNOWN

REACTIONS (2)
  - HEPATOCELLULAR INJURY [None]
  - MALIGNANT NEOPLASM PROGRESSION [None]
